FAERS Safety Report 20442101 (Version 2)
Quarter: 2022Q1

REPORT INFORMATION
  Report Type: Spontaneous
  Country: PL (occurrence: PL)
  Receive Date: 20220208
  Receipt Date: 20220217
  Transmission Date: 20220423
  Serious: Yes (Other)
  Sender: FDA-Public Use
  Company Number: PL-SUN PHARMACEUTICAL INDUSTRIES LTD-2021R1-311367

PATIENT
  Age: 60 Year
  Sex: Female

DRUGS (14)
  1. PANTOPRAZOLE [Suspect]
     Active Substance: PANTOPRAZOLE
     Indication: Osteoarthritis
     Dosage: UNK
     Route: 065
  2. PANTOPRAZOLE [Suspect]
     Active Substance: PANTOPRAZOLE
     Indication: Osteoarthritis
  3. PANTOPRAZOLE [Suspect]
     Active Substance: PANTOPRAZOLE
     Indication: Arthralgia
  4. DICLOFENAC [Suspect]
     Active Substance: DICLOFENAC
     Indication: Arthralgia
     Dosage: UNK (APPLYING)
     Route: 065
  5. DICLOFENAC [Suspect]
     Active Substance: DICLOFENAC
     Indication: Osteoarthritis
  6. DICLOFENAC [Suspect]
     Active Substance: DICLOFENAC
     Indication: Analgesic intervention supportive therapy
  7. ETORICOXIB [Suspect]
     Active Substance: ETORICOXIB
     Indication: Arthralgia
     Dosage: UNK
     Route: 065
  8. ETORICOXIB [Suspect]
     Active Substance: ETORICOXIB
     Indication: Osteoarthritis
     Route: 065
  9. ETORICOXIB [Suspect]
     Active Substance: ETORICOXIB
     Indication: Osteoarthritis
     Dosage: UNK
     Route: 065
  10. KETOPROFEN [Suspect]
     Active Substance: KETOPROFEN
     Indication: Osteoarthritis
     Dosage: UNK (APPLYING)
     Route: 065
  11. KETOPROFEN [Suspect]
     Active Substance: KETOPROFEN
     Indication: Arthralgia
  12. KETOPROFEN [Suspect]
     Active Substance: KETOPROFEN
     Indication: Analgesic intervention supportive therapy
  13. RAMIPRIL [Concomitant]
     Active Substance: RAMIPRIL
     Indication: Hypertension
     Dosage: 2.5 MILLIGRAM, DAILY
     Route: 065
  14. RAMIPRIL [Concomitant]
     Active Substance: RAMIPRIL
     Indication: Hypertension
     Route: 065

REACTIONS (5)
  - Abdominal pain upper [Recovered/Resolved]
  - Dyspepsia [Recovered/Resolved]
  - Blood pressure increased [Recovering/Resolving]
  - Oedema peripheral [Recovering/Resolving]
  - Peripheral swelling [Recovered/Resolved]
